FAERS Safety Report 15544944 (Version 2)
Quarter: 2021Q4

REPORT INFORMATION
  Report Type: Spontaneous
  Country: US (occurrence: US)
  Receive Date: 20181024
  Receipt Date: 20211011
  Transmission Date: 20220303
  Serious: Yes (Hospitalization, Other)
  Sender: FDA-Public Use
  Company Number: US-MLMSERVICE-20181004-1409102-1

PATIENT
  Age: 66 Year
  Sex: Male

DRUGS (3)
  1. PIPERACILLIN AND TAZOBACTAM [Suspect]
     Active Substance: PIPERACILLIN SODIUM\TAZOBACTAM SODIUM
     Indication: Appendicitis
     Dosage: UNK,TREATED EMPIRICALLY WITH PIPERACILLIN/TAZOBACTAM ON ADMISSION
     Route: 065
  2. PIPERACILLIN AND TAZOBACTAM [Suspect]
     Active Substance: PIPERACILLIN SODIUM\TAZOBACTAM SODIUM
     Dosage: UNK
     Route: 065
  3. Ampicillin;Clavulanic acid [Concomitant]
     Indication: Appendicitis
     Dosage: UNK
     Route: 065

REACTIONS (3)
  - Acute kidney injury [Recovered/Resolved]
  - Haemolytic anaemia [Recovered/Resolved]
  - Respiratory failure [Recovered/Resolved]
